FAERS Safety Report 19681503 (Version 1)
Quarter: 2021Q3

REPORT INFORMATION
  Report Type: Spontaneous
  Country: CA (occurrence: CA)
  Receive Date: 20210810
  Receipt Date: 20210810
  Transmission Date: 20211014
  Serious: Yes (Other)
  Sender: FDA-Public Use
  Company Number: CA-ALLERGAN-2127707US

PATIENT
  Sex: Female

DRUGS (1)
  1. BOTOX COSMETIC [Suspect]
     Active Substance: ONABOTULINUMTOXINA
     Indication: SKIN WRINKLING
     Dosage: UNK UNK, SINGLE
     Dates: start: 20210705, end: 20210705

REACTIONS (5)
  - Feeling abnormal [Unknown]
  - Panic attack [Unknown]
  - Arthralgia [Unknown]
  - Botulism [Unknown]
  - Migraine [Unknown]
